FAERS Safety Report 5115036-5 (Version None)
Quarter: 2006Q3

REPORT INFORMATION
  Report Type: 
  Country: None (occurrence: None)
  Receive Date: 20060922
  Receipt Date: 20060911
  Transmission Date: 20061208
  Serious: Yes (Hospitalization, Disabling, Other)
  Sender: FDA-Public Use
  Company Number: 430041M06USA

PATIENT
  Age: 61 Year
  Sex: Male
  Weight: 79.4 kg

DRUGS (4)
  1. NOVANTRONE [Suspect]
     Indication: MULTIPLE SCLEROSIS
     Dosage: 12 MG/M2, 1 IN 3 MONTHS, INTRAVENOUS
     Route: 042
     Dates: start: 20021021, end: 20031003
  2. RITUXIMAB (RITUXIMAB) [Suspect]
     Dates: start: 20050801, end: 20060301
  3. CELLCEPT [Suspect]
     Dates: start: 20030101
  4. SOLU-MEDROL [Concomitant]

REACTIONS (1)
  - PANCREATIC CARCINOMA [None]
